FAERS Safety Report 19734278 (Version 1)
Quarter: 2021Q3

REPORT INFORMATION
  Report Type: Spontaneous
  Country: US (occurrence: US)
  Receive Date: 20210824
  Receipt Date: 20210824
  Transmission Date: 20211014
  Serious: No
  Sender: FDA-Public Use
  Company Number: US-B.I. PHARMACEUTICALS,INC./RIDGEFIELD-2021-BI-123134

PATIENT
  Age: 68 Year
  Sex: Female

DRUGS (1)
  1. SYNJARDY XR [Suspect]
     Active Substance: EMPAGLIFLOZIN\METFORMIN HYDROCHLORIDE
     Indication: PRODUCT USED FOR UNKNOWN INDICATION
     Dosage: SYNJARDY XR 12.5?1000MG 1 TAB BY MOUTH DAILY
     Route: 048

REACTIONS (1)
  - Medication error [Unknown]

NARRATIVE: CASE EVENT DATE: 20210823
